FAERS Safety Report 7863250-8 (Version None)
Quarter: 2011Q4

REPORT INFORMATION
  Report Type: 
  Country: None (occurrence: None)
  Receive Date: 20111027
  Receipt Date: 20101130
  Transmission Date: 20120403
  Serious: No
  Sender: FDA-Public Use
  Company Number: US-AMGEN-USASP2010006865

PATIENT
  Age: 64 Year
  Sex: Male

DRUGS (1)
  1. ENBREL [Suspect]
     Indication: ANKYLOSING SPONDYLITIS
     Dosage: 50 MG, QWK
     Dates: start: 20101101

REACTIONS (8)
  - GAIT DISTURBANCE [None]
  - BALANCE DISORDER [None]
  - RESPIRATION ABNORMAL [None]
  - TENDON DISORDER [None]
  - ACNE [None]
  - ARTHRALGIA [None]
  - MUSCLE TIGHTNESS [None]
  - BACK PAIN [None]
